FAERS Safety Report 7453153-5 (Version None)
Quarter: 2011Q2

REPORT INFORMATION
  Report Type: 
  Country: None (occurrence: None)
  Receive Date: 20110502
  Receipt Date: 20110110
  Transmission Date: 20111010
  Serious: No
  Sender: FDA-Public Use
  Company Number: US-ASTRAZENECA-2010SE55629

PATIENT
  Age: 65 Year
  Sex: Male
  Weight: 89.4 kg

DRUGS (7)
  1. MOBIC [Concomitant]
     Indication: ARTHRITIS
  2. NEXIUM [Suspect]
     Route: 048
     Dates: start: 20100101
  3. NEXIUM [Suspect]
     Indication: GASTROOESOPHAGEAL REFLUX DISEASE
     Route: 048
  4. METHOTREXATE [Concomitant]
     Indication: ARTHRITIS
     Route: 042
  5. CALCIUM [Concomitant]
  6. REMACADE [Concomitant]
     Indication: ARTHRITIS
  7. VIT D [Concomitant]

REACTIONS (4)
  - DRUG EFFECT DECREASED [None]
  - DRUG INEFFECTIVE [None]
  - PALPITATIONS [None]
  - INCORRECT DOSE ADMINISTERED [None]
